FAERS Safety Report 20980640 (Version 1)
Quarter: 2022Q2

REPORT INFORMATION
  Report Type: Spontaneous
  Country: CN (occurrence: CN)
  Receive Date: 20220620
  Receipt Date: 20220620
  Transmission Date: 20220721
  Serious: Yes (Death)
  Sender: FDA-Public Use
  Company Number: CN-IGSA-BIG0019258

PATIENT
  Age: 81 Year
  Sex: Male

DRUGS (1)
  1. ALBUTEIN [Suspect]
     Active Substance: ALBUMIN HUMAN
     Indication: Hypoalbuminaemia
     Dosage: UNK
     Route: 042
     Dates: start: 20220609, end: 20220609

REACTIONS (2)
  - Anaphylactic shock [Fatal]
  - Myocardial infarction [Fatal]

NARRATIVE: CASE EVENT DATE: 20220609
